FAERS Safety Report 7023669-4 (Version None)
Quarter: 2010Q3

REPORT INFORMATION
  Report Type: 
  Country: None (occurrence: None)
  Receive Date: 20100929
  Receipt Date: 20100929
  Transmission Date: 20110219
  Serious: Yes (Hospitalization)
  Sender: FDA-Public Use
  Company Number: None

PATIENT
  Sex: Female
  Weight: 70 kg

DRUGS (3)
  1. IFOSFAMIDE [Suspect]
     Dosage: 8.58 MG
  2. TAXOL [Suspect]
     Dosage: 243 MG
  3. NEULASTA [Suspect]
     Dosage: 6 MG

REACTIONS (6)
  - ANAEMIA [None]
  - BODY TEMPERATURE DECREASED [None]
  - CATHETER SITE ERYTHEMA [None]
  - CATHETER SITE SWELLING [None]
  - DEVICE RELATED INFECTION [None]
  - STAPHYLOCOCCAL INFECTION [None]
